FAERS Safety Report 18241156 (Version 1)
Quarter: 2020Q3

REPORT INFORMATION
  Report Type: Spontaneous
  Country: US (occurrence: US)
  Receive Date: 20200906
  Receipt Date: 20200906
  Transmission Date: 20201103
  Serious: Yes (Disabling)
  Sender: FDA-Public Use
  Company Number: None

PATIENT
  Age: 60 Year
  Sex: Female
  Weight: 69.75 kg

DRUGS (8)
  1. PERRIGO ALBUTEROL INHALER [Suspect]
     Active Substance: ALBUTEROL
     Indication: ASTHMA
     Dosage: ?          QUANTITY:1 PUFF(S);?
     Route: 055
  2. QVAR [Concomitant]
     Active Substance: BECLOMETHASONE DIPROPIONATE
  3. GABAPENTIN. [Concomitant]
     Active Substance: GABAPENTIN
  4. SAM?E [Concomitant]
     Active Substance: ADEMETIONINE
  5. SINGULAIR [Concomitant]
     Active Substance: MONTELUKAST SODIUM
  6. CODEINE [Concomitant]
     Active Substance: CODEINE
  7. CLARITIN [Concomitant]
     Active Substance: LORATADINE
  8. VITAMIN D [Concomitant]
     Active Substance: VITAMIN D NOS

REACTIONS (3)
  - Device malfunction [None]
  - Product substitution issue [None]
  - Incorrect dose administered by device [None]

NARRATIVE: CASE EVENT DATE: 20200906
